FAERS Safety Report 5194170-8 (Version None)
Quarter: 2006Q4

REPORT INFORMATION
  Report Type: 
  Country: None (occurrence: None)
  Receive Date: 20061226
  Receipt Date: 20061214
  Transmission Date: 20070319
  Serious: Yes (Hospitalization, Other)
  Sender: FDA-Public Use
  Company Number: HQWYE974514JUL06

PATIENT
  Age: 59 Year
  Sex: Male

DRUGS (11)
  1. RAPAMUNE [Suspect]
     Indication: PROPHYLAXIS AGAINST TRANSPLANT REJECTION
     Dosage: SEE IMAGE
     Route: 048
     Dates: start: 20060611, end: 20060616
  2. RAPAMUNE [Suspect]
     Indication: PROPHYLAXIS AGAINST TRANSPLANT REJECTION
     Dosage: SEE IMAGE
     Route: 048
     Dates: start: 20060617, end: 20061030
  3. CELLCEPT [Suspect]
     Dosage: 1 G 2X PER 1 DAY, ORAL
     Route: 048
     Dates: start: 20060414, end: 20061030
  4. ZOSYN [Suspect]
     Indication: LIVER ABSCESS
     Dosage: 13.5 G 1X PER 1 DAY
     Dates: start: 20061027, end: 20061102
  5. ACYCLOVIR [Concomitant]
  6. BACTRIM DS [Concomitant]
  7. NEXIUM [Concomitant]
  8. AMARYL [Concomitant]
  9. TACROLIMUS (TACROLIMUS) [Concomitant]
  10. TACROLIMUS (TACROLIMUS) [Concomitant]
  11. TACROLIMUS (TACROLIMUS) [Concomitant]

REACTIONS (14)
  - ALANINE AMINOTRANSFERASE INCREASED [None]
  - ANASTOMOTIC STENOSIS [None]
  - ASPARTATE AMINOTRANSFERASE INCREASED [None]
  - BILE DUCT NECROSIS [None]
  - BLOOD ALKALINE PHOSPHATASE INCREASED [None]
  - BLOOD BILIRUBIN INCREASED [None]
  - CHOLANGITIS [None]
  - CLOSTRIDIUM DIFFICILE COLITIS [None]
  - DILATATION INTRAHEPATIC DUCT ACQUIRED [None]
  - GAMMA-GLUTAMYLTRANSFERASE INCREASED [None]
  - HEPATIC ARTERY OCCLUSION [None]
  - HEPATIC ARTERY THROMBOSIS [None]
  - LIVER ABSCESS [None]
  - POST PROCEDURAL COMPLICATION [None]
